FAERS Safety Report 21027296 (Version 2)
Quarter: 2022Q3

REPORT INFORMATION
  Report Type: Report from Study
  Country: CN (occurrence: CN)
  Receive Date: 20220630
  Receipt Date: 20220701
  Transmission Date: 20221027
  Serious: Yes (Other)
  Sender: FDA-Public Use
  Company Number: CN-PFIZER INC-202200891729

PATIENT
  Age: 45 Month
  Sex: Male

DRUGS (2)
  1. CYTARABINE [Suspect]
     Active Substance: CYTARABINE
     Indication: Langerhans^ cell histiocytosis
     Dosage: 500 MG/M2, CYCLIC (500 MG/M2 ON DAY 1 TO DAY 5 AND THAN EVERY 28 DAY WITH TOTAL 4-6 COURSES)
     Route: 041
  2. CLADRIBINE [Suspect]
     Active Substance: CLADRIBINE
     Indication: Langerhans^ cell histiocytosis
     Dosage: 9 MG/M2, CYCLIC (9 MG/M2, ON DAY 1 TO DAY 5 AND THAN EVERY 28 DAY WITH TOTAL 4-6 COURSES)
     Route: 041

REACTIONS (2)
  - Myelosuppression [Unknown]
  - Febrile neutropenia [Unknown]
